FAERS Safety Report 9358914 (Version 1)
Quarter: 2013Q2

REPORT INFORMATION
  Report Type: Spontaneous
  Country: TW (occurrence: TW)
  Receive Date: 20130620
  Receipt Date: 20130620
  Transmission Date: 20140414
  Serious: Yes (Hospitalization, Other)
  Sender: FDA-Public Use
  Company Number: PHHY2013TW062678

PATIENT
  Age: 30 Year
  Sex: Male

DRUGS (5)
  1. DIAZEPAM [Suspect]
  2. VENLAFAXINE [Suspect]
  3. ZOLPIDEM [Suspect]
  4. TRAZODONE HYDROCHLORIDE [Suspect]
  5. MOCLOBEMIDE [Suspect]

REACTIONS (12)
  - Serotonin syndrome [Recovering/Resolving]
  - Unresponsive to stimuli [Recovering/Resolving]
  - Altered state of consciousness [Recovered/Resolved]
  - Renal failure acute [Recovering/Resolving]
  - Hyperkalaemia [Recovering/Resolving]
  - Metabolic acidosis [Recovering/Resolving]
  - Rhabdomyolysis [Recovering/Resolving]
  - Myoclonus [Recovered/Resolved]
  - Hyperreflexia [Recovered/Resolved]
  - Anuria [Recovering/Resolving]
  - Suicide attempt [Unknown]
  - Toxicity to various agents [Unknown]
